FAERS Safety Report 16343685 (Version 2)
Quarter: 2019Q2

REPORT INFORMATION
  Report Type: Spontaneous
  Country: US (occurrence: US)
  Receive Date: 20190522
  Receipt Date: 20190628
  Transmission Date: 20190711
  Serious: No
  Sender: FDA-Public Use
  Company Number: US-PFIZER INC-2019212878

PATIENT
  Age: 71 Year
  Sex: Female

DRUGS (3)
  1. ADVIL [Suspect]
     Active Substance: IBUPROFEN
     Indication: PERIPHERAL SWELLING
     Dosage: UNK, ONCE A DAY
  2. JUNIOR STRENGTH ADVIL [Suspect]
     Active Substance: IBUPROFEN
     Dosage: 2 DF, ONCE A DAY (AT BEDTIME)
     Dates: start: 20190425
  3. JUNIOR STRENGTH ADVIL [Suspect]
     Active Substance: IBUPROFEN
     Indication: CARPAL TUNNEL SYNDROME
     Dosage: 3 DF, TWICE A DAY (3 CHEWABLES IN THE MORNING AND 3 AT NIGHT)
     Dates: start: 201904

REACTIONS (7)
  - Gait disturbance [Recovered/Resolved]
  - Hypoacusis [Recovered/Resolved]
  - Ear swelling [Recovered/Resolved]
  - Erythema [Recovered/Resolved]
  - Product use issue [Unknown]
  - Pain [Unknown]
  - Movement disorder [Unknown]

NARRATIVE: CASE EVENT DATE: 20190425
